FAERS Safety Report 5245541-2 (Version None)
Quarter: 2007Q1

REPORT INFORMATION
  Report Type: 
  Country: None (occurrence: None)
  Receive Date: 20070223
  Receipt Date: 20070215
  Transmission Date: 20070707
  Serious: No
  Sender: FDA-Public Use
  Company Number: AU-PFIZER INC-2007000170

PATIENT
  Sex: Female

DRUGS (5)
  1. LIPITOR [Suspect]
     Route: 048
  2. ATENOLOL [Concomitant]
  3. NIFEDIPINE [Concomitant]
  4. PANTOPRAZOLE SODIUM [Concomitant]
  5. DEXCHLORPHENIRAMINE MALEATE [Concomitant]

REACTIONS (4)
  - BLOOD CREATINE PHOSPHOKINASE INCREASED [None]
  - LIP SWELLING [None]
  - MUSCLE DISORDER [None]
  - SWOLLEN TONGUE [None]
